FAERS Safety Report 9934163 (Version 2)
Quarter: 2014Q1

REPORT INFORMATION
  Report Type: Report from Study
  Country: US (occurrence: US)
  Receive Date: 20140228
  Receipt Date: 20140228
  Transmission Date: 20141002
  Serious: Yes (Other)
  Sender: FDA-Public Use
  Company Number: PHEH2013US013399

PATIENT
  Age: 27 Year
  Sex: Female

DRUGS (11)
  1. AFINITOR [Suspect]
     Indication: ANGIOMYOLIPOMA
     Dosage: 5 MG, QD
     Route: 048
     Dates: start: 20130222, end: 20130618
  2. AFINITOR [Suspect]
     Dosage: 5 MG, QD
     Route: 048
     Dates: end: 20130706
  3. LAMICTAL [Concomitant]
  4. TRILEPTAL [Concomitant]
  5. POTASSIUM SUPPLEMENTS [Concomitant]
  6. ALLOPURINOL [Concomitant]
  7. ZIAC [Concomitant]
  8. MULTI-VIT [Concomitant]
  9. FOLIC ACID [Concomitant]
  10. VENTOLIN                           /00942701/ [Concomitant]
  11. ZOCOR [Concomitant]
     Dosage: UNK UKN, UNK

REACTIONS (4)
  - Abortion [Unknown]
  - Back pain [Unknown]
  - Pain [Unknown]
  - Exposure during pregnancy [Unknown]
